FAERS Safety Report 21004064 (Version 1)
Quarter: 2022Q2

REPORT INFORMATION
  Report Type: Spontaneous
  Country: CN (occurrence: CN)
  Receive Date: 20220624
  Receipt Date: 20220624
  Transmission Date: 20220720
  Serious: Yes (Other)
  Sender: FDA-Public Use
  Company Number: CN-PFIZER INC-PV202200007848

PATIENT
  Age: 21 Month
  Sex: Female
  Weight: 10 kg

DRUGS (2)
  1. SOLU-MEDROL [Suspect]
     Active Substance: METHYLPREDNISOLONE SODIUM SUCCINATE
     Indication: Inflammation
     Dosage: 20 MG, 2X/DAY
     Route: 041
     Dates: start: 20220603, end: 20220607
  2. HUMAN IMMUNOGLOBULIN G [Concomitant]
     Active Substance: HUMAN IMMUNOGLOBULIN G
     Indication: Therapeutic procedure
     Dosage: 2500 MG, 1X/DAY
     Route: 041
     Dates: start: 20220603, end: 20220605

REACTIONS (2)
  - Platelet count increased [Recovering/Resolving]
  - White blood cell count increased [Recovering/Resolving]

NARRATIVE: CASE EVENT DATE: 20220607
